FAERS Safety Report 17105828 (Version 1)
Quarter: 2019Q4

REPORT INFORMATION
  Report Type: Spontaneous
  Country: US (occurrence: US)
  Receive Date: 20191203
  Receipt Date: 20191203
  Transmission Date: 20200122
  Serious: Yes (Hospitalization, Other)
  Sender: FDA-Public Use
  Company Number: US-PFIZER INC-2019515842

PATIENT
  Age: 69 Year
  Sex: Female
  Weight: 48.99 kg

DRUGS (17)
  1. ESTRING [Suspect]
     Active Substance: ESTRADIOL
     Indication: VULVOVAGINAL DRYNESS
  2. BABY ASPIRIN [Concomitant]
     Active Substance: ASPIRIN
  3. ESTRING [Suspect]
     Active Substance: ESTRADIOL
     Indication: NERVE INJURY
     Dosage: 2 MG, UNK (2MG INSERTED VAGINALLY FOR 90 DAYS)
     Route: 067
     Dates: start: 2002
  4. GABAPENTIN. [Concomitant]
     Active Substance: GABAPENTIN
     Dosage: UNK, DAILY, (3-300MG DAILY)
  5. PROLIA [Concomitant]
     Active Substance: DENOSUMAB
     Dosage: UNK, (EVERY 6 MONTHS)
     Dates: start: 2017
  6. OMEPRAZOLE. [Concomitant]
     Active Substance: OMEPRAZOLE
     Dosage: 20 MG, UNK
  7. ONE-A-DAY [MINERALS NOS;VITAMINS NOS] [Concomitant]
     Dosage: 1 DF, DAILY(1 PILL)
  8. METOPROLOL. [Concomitant]
     Active Substance: METOPROLOL
     Dosage: 25 MG, UNK
  9. SYNTHROID [Concomitant]
     Active Substance: LEVOTHYROXINE SODIUM
     Dosage: 50 UG, UNK
  10. CITRACAL-D [Concomitant]
     Active Substance: CALCIUM CITRATE\CHOLECALCIFEROL
     Dosage: 2 DF, DAILY(2 PILLS DAILY)
  11. LIPITOR [Concomitant]
     Active Substance: ATORVASTATIN CALCIUM
     Dosage: 20 MG, UNK
  12. VALACYCLOVIR [Concomitant]
     Active Substance: VALACYCLOVIR HYDROCHLORIDE
     Dosage: 500 MG, UNK
  13. METFORMIN [Concomitant]
     Active Substance: METFORMIN HYDROCHLORIDE
     Dosage: UNK(2-500MG)
  14. VITAMIN D [COLECALCIFEROL] [Concomitant]
     Active Substance: CHOLECALCIFEROL
     Dosage: UNK, (400)
  15. ESTRING [Suspect]
     Active Substance: ESTRADIOL
     Indication: MENOPAUSE
  16. NORTRIPTYLINE [Concomitant]
     Active Substance: NORTRIPTYLINE
     Dosage: UNK, (2-10 MG)
  17. ZOLPIDEM [Concomitant]
     Active Substance: ZOLPIDEM TARTRATE
     Dosage: 10 MG, UNK

REACTIONS (5)
  - Hip fracture [Recovered/Resolved]
  - Incorrect product administration duration [Unknown]
  - Bacterial vaginosis [Recovered/Resolved]
  - Fungal infection [Recovered/Resolved]
  - Burning sensation [Not Recovered/Not Resolved]

NARRATIVE: CASE EVENT DATE: 201501
